FAERS Safety Report 24382013 (Version 3)
Quarter: 2024Q4

REPORT INFORMATION
  Report Type: Spontaneous
  Country: CA (occurrence: CA)
  Receive Date: 20241001
  Receipt Date: 20241219
  Transmission Date: 20250115
  Serious: Yes (Other)
  Sender: SANDOZ
  Company Number: CA-SANDOZ-SDZ2024CA083785

PATIENT
  Age: 62 Year
  Sex: Female
  Weight: 43 kg

DRUGS (19)
  1. CLOZAPINE [Suspect]
     Active Substance: CLOZAPINE
     Indication: Product used for unknown indication
     Dosage: 75 MG, BID
     Route: 048
  2. CLOZAPINE [Suspect]
     Active Substance: CLOZAPINE
     Dosage: UNK
     Route: 065
  3. OLANZAPINE [Suspect]
     Active Substance: OLANZAPINE
     Indication: Product used for unknown indication
     Dosage: 10 MG, Q24H
     Route: 048
  4. OLANZAPINE [Suspect]
     Active Substance: OLANZAPINE
     Dosage: 10 MG, BID
     Route: 048
  5. OLANZAPINE [Suspect]
     Active Substance: OLANZAPINE
     Dosage: 10 MG, TID
     Route: 048
  6. QUETIAPINE [Suspect]
     Active Substance: QUETIAPINE
     Indication: Product used for unknown indication
     Dosage: UNK
     Route: 065
  7. RISPERIDONE [Suspect]
     Active Substance: RISPERIDONE
     Indication: Product used for unknown indication
     Dosage: 1.5 MG
     Route: 065
  8. RISPERIDONE [Suspect]
     Active Substance: RISPERIDONE
     Dosage: 4.0 MG, Q24H
     Route: 065
  9. ACETAMINOPHEN [Concomitant]
     Active Substance: ACETAMINOPHEN
     Indication: Product used for unknown indication
     Dosage: 4 EVERY 1 DAYS
     Route: 048
  10. BENYLIN DM [Concomitant]
     Active Substance: DEXTROMETHORPHAN HYDROBROMIDE\GUAIFENESIN
     Indication: Antitussive therapy
     Dosage: UNK
     Route: 048
  11. BISACODYL [Concomitant]
     Active Substance: BISACODYL
     Indication: Product used for unknown indication
     Dosage: 1 DF
     Route: 065
  12. DIPHENHYDRAMINE HYDROCHLORIDE [Concomitant]
     Active Substance: DIPHENHYDRAMINE HYDROCHLORIDE
     Indication: Product used for unknown indication
     Dosage: 25 MG
     Route: 048
  13. LACTULOSE [Concomitant]
     Active Substance: LACTULOSE
     Indication: Constipation
     Dosage: 15 ML (LIQUID ORAL)
     Route: 048
  14. LACTULOSE [Concomitant]
     Active Substance: LACTULOSE
     Dosage: 20 ML (SYRUP)
     Route: 048
  15. LACTULOSE [Concomitant]
     Active Substance: LACTULOSE
     Dosage: 30 ML
     Route: 048
  16. MIRTAZAPINE [Concomitant]
     Active Substance: MIRTAZAPINE
     Indication: Product used for unknown indication
     Dosage: 7.5 MG
     Route: 065
  17. SENNOSIDES [Concomitant]
     Active Substance: SENNOSIDES
     Dosage: 24 MG
     Route: 048
  18. SENNOSIDES [Concomitant]
     Active Substance: SENNOSIDES
     Indication: Constipation
     Dosage: 36 MG, QD
     Route: 048
  19. VENLAFAXINE HYDROCHLORIDE [Concomitant]
     Active Substance: VENLAFAXINE HYDROCHLORIDE
     Indication: Product used for unknown indication
     Dosage: 1 DF,EXTENDED RELEASE
     Route: 048

REACTIONS (3)
  - Oropharyngeal pain [Recovered/Resolved]
  - Drug resistance [Recovered/Resolved]
  - Neutropenia [Recovered/Resolved]
